FAERS Safety Report 9594217 (Version 1)
Quarter: 2013Q3

REPORT INFORMATION
  Report Type: Spontaneous
  Country: US (occurrence: None)
  Receive Date: 20130923
  Receipt Date: 20130923
  Transmission Date: 20140515
  Serious: Yes (Hospitalization)
  Sender: FDA-Public Use
  Company Number: 2013STPI000248

PATIENT
  Age: 46 Year
  Sex: Female
  Weight: 72.6 kg

DRUGS (3)
  1. MATULANE [Suspect]
     Indication: BRAIN NEOPLASM MALIGNANT
     Route: 048
     Dates: start: 2013, end: 2013
  2. EXCEDRIN [Concomitant]
  3. ADVIL (IBUPROFEN) [Concomitant]

REACTIONS (1)
  - Malaise [None]
